FAERS Safety Report 7785812-9 (Version None)
Quarter: 2011Q3

REPORT INFORMATION
  Report Type: 
  Country: None (occurrence: None)
  Receive Date: 20110929
  Receipt Date: 20110927
  Transmission Date: 20111222
  Serious: Yes (Hospitalization)
  Sender: FDA-Public Use
  Company Number: US-BAYER-2011-079566

PATIENT
  Age: 54 Year
  Sex: Male

DRUGS (3)
  1. LACTULOSE [Concomitant]
     Dosage: UNK
  2. NEXAVAR [Suspect]
     Indication: HEPATIC NEOPLASM MALIGNANT
     Dosage: 200 MG, BID
     Route: 048
     Dates: start: 20110813, end: 20110901
  3. NEXAVAR [Suspect]
     Dosage: 600 MG, QD (400 MG IN AM AND 200 MG IN PM)
     Route: 048
     Dates: start: 20110901

REACTIONS (6)
  - BLISTER [None]
  - DIARRHOEA [None]
  - BLOOD BILIRUBIN INCREASED [None]
  - AMMONIA INCREASED [None]
  - ABDOMINAL PAIN [None]
  - HYPERKERATOSIS [None]
